FAERS Safety Report 23584544 (Version 1)
Quarter: 2024Q1

REPORT INFORMATION
  Report Type: Spontaneous
  Country: CN (occurrence: CN)
  Receive Date: 20240301
  Receipt Date: 20240301
  Transmission Date: 20240410
  Serious: Yes (Hospitalization)
  Sender: FDA-Public Use
  Company Number: CN-JNJFOC-20240267955

PATIENT
  Age: 74 Year
  Sex: Male

DRUGS (3)
  1. DARZALEX [Suspect]
     Active Substance: DARATUMUMAB
     Indication: Plasma cell myeloma
     Dosage: D1 15
     Route: 041
     Dates: start: 20240201, end: 20240201
  2. DEXAMETHASONE [Suspect]
     Active Substance: DEXAMETHASONE
     Indication: Plasma cell myeloma
     Dosage: D1-2 8-9 15-16 23-24
     Route: 048
     Dates: start: 20240201, end: 20240220
  3. LENALIDOMIDE [Suspect]
     Active Substance: LENALIDOMIDE
     Indication: Plasma cell myeloma
     Dosage: D1-21
     Route: 048
     Dates: start: 20240201, end: 20240220

REACTIONS (6)
  - Pruritus [Recovering/Resolving]
  - Dysarthria [Recovering/Resolving]
  - Abnormal behaviour [Recovering/Resolving]
  - Bradykinesia [Recovering/Resolving]
  - Incontinence [Recovering/Resolving]
  - Rash erythematous [Recovering/Resolving]

NARRATIVE: CASE EVENT DATE: 20240210
